FAERS Safety Report 8944257 (Version 2)
Quarter: 2013Q2

REPORT INFORMATION
  Report Type: Spontaneous
  Country: US (occurrence: US)
  Receive Date: 20121204
  Receipt Date: 20130506
  Transmission Date: 20140414
  Serious: No
  Sender: FDA-Public Use
  Company Number: US-AMGEN-USASP2012065788

PATIENT
  Age: 51 Year
  Sex: Female

DRUGS (8)
  1. ENBREL [Suspect]
     Indication: RHEUMATOID ARTHRITIS
     Dosage: 50 MG, QWK
     Dates: start: 20120420, end: 20130314
  2. LEFLUNOMIDE [Concomitant]
     Dosage: 20 MG AWHILE TO 10 MG AWHILE DAILY
     Dates: start: 20120803, end: 20121011
  3. METHOTREXATE [Concomitant]
     Dosage: 15 MG, QWK
     Dates: start: 201206
  4. PLAQUENIL                          /00072602/ [Concomitant]
     Dosage: 200 MG,ONE AND HALF TABLETS QD SINCE TWO YEARS
     Dates: start: 20110928
  5. ANTIBIOTICS [Concomitant]
     Dosage: UNK
  6. TYLENOL                            /00020001/ [Concomitant]
     Dosage: UNK
  7. ASPIRIN [Concomitant]
     Dosage: UNK
  8. SULFASALAZINE [Concomitant]
     Dosage: UNK UNK, ONE TABLET QD ON SIX TO SEVEN MONTHS

REACTIONS (4)
  - Musculoskeletal pain [Not Recovered/Not Resolved]
  - Pain in extremity [Not Recovered/Not Resolved]
  - Local swelling [Not Recovered/Not Resolved]
  - Joint swelling [Not Recovered/Not Resolved]
